FAERS Safety Report 8397230-3 (Version None)
Quarter: 2012Q2

REPORT INFORMATION
  Report Type: 
  Country: None (occurrence: None)
  Receive Date: 20120530
  Receipt Date: 20120504
  Transmission Date: 20120825
  Serious: Yes (Hospitalization, Other)
  Sender: FDA-Public Use
  Company Number: US-PFIZER INC-2012109088

PATIENT
  Sex: Female
  Weight: 88.889 kg

DRUGS (3)
  1. LASIX [Concomitant]
     Indication: CARDIAC DISORDER
     Dosage: 40 MG, 2X/DAY
  2. POTASSIUM [Concomitant]
     Indication: PROPHYLAXIS
     Dosage: 10 MEQ, 2X/DAY
  3. GABAPENTIN [Suspect]
     Indication: DIABETES MELLITUS
     Dosage: 600 MG, 3X/DAY
     Dates: start: 20110101

REACTIONS (2)
  - PULMONARY OEDEMA [None]
  - CARDIAC FAILURE CONGESTIVE [None]
